FAERS Safety Report 15361474 (Version 1)
Quarter: 2018Q3

REPORT INFORMATION
  Report Type: Spontaneous
  Country: US (occurrence: US)
  Receive Date: 20180831
  Receipt Date: 20180831
  Transmission Date: 20181010
  Serious: Yes (Hospitalization)
  Sender: FDA-Public Use
  Company Number: None

PATIENT
  Age: 70 Year
  Sex: Female

DRUGS (12)
  1. IBANDRONATE [Concomitant]
     Active Substance: IBANDRONATE SODIUM
  2. OXYCODONE AND ACETAMINOPHEN [Concomitant]
     Active Substance: ACETAMINOPHEN\OXYCODONE HYDROCHLORIDE
  3. AMBIEN CR [Concomitant]
     Active Substance: ZOLPIDEM TARTRATE
  4. CIPROFLOXACIN. [Concomitant]
     Active Substance: CIPROFLOXACIN
  5. SERTRALINE [Concomitant]
     Active Substance: SERTRALINE HYDROCHLORIDE
  6. BONIVA [Concomitant]
     Active Substance: IBANDRONATE SODIUM
  7. METOPROLOL. [Concomitant]
     Active Substance: METOPROLOL
  8. PROP?N/APAP [Concomitant]
  9. VITAMIN D [Concomitant]
     Active Substance: CHOLECALCIFEROL
  10. IBUPROFEN. [Concomitant]
     Active Substance: IBUPROFEN
  11. PROMACTA [Concomitant]
     Active Substance: ELTROMBOPAG OLAMINE
  12. PROMACTA [Suspect]
     Active Substance: ELTROMBOPAG OLAMINE
     Indication: IMMUNE THROMBOCYTOPENIC PURPURA
     Route: 048
     Dates: start: 20141018

REACTIONS (1)
  - Intervertebral disc operation [None]

NARRATIVE: CASE EVENT DATE: 20180830
